FAERS Safety Report 5669252-4 (Version None)
Quarter: 2008Q1

REPORT INFORMATION
  Report Type: 
  Country: None (occurrence: None)
  Receive Date: 20080313
  Receipt Date: 20080313
  Transmission Date: 20080703
  Serious: No
  Sender: FDA-Public Use
  Company Number: None

PATIENT
  Sex: Male
  Weight: 10.8863 kg

DRUGS (2)
  1. CHILDREN'S TRIAMINIC SYRUP NOVARTIS [Suspect]
     Indication: COUGH
     Dosage: 1 TEASPOON EVERY 4 HOURS PO
     Route: 048
     Dates: start: 20080312, end: 20080312
  2. CHILDREN'S TRIAMINIC SYRUP NOVARTIS [Suspect]
     Indication: NASAL CONGESTION
     Dosage: 1 TEASPOON EVERY 4 HOURS PO
     Route: 048
     Dates: start: 20080312, end: 20080312

REACTIONS (1)
  - PHARMACEUTICAL PRODUCT COMPLAINT [None]
